FAERS Safety Report 8271265-3 (Version None)
Quarter: 2012Q2

REPORT INFORMATION
  Report Type: 
  Country: None (occurrence: None)
  Receive Date: 20120406
  Receipt Date: 20120321
  Transmission Date: 20120825
  Serious: Yes (Hospitalization, Disabling)
  Sender: FDA-Public Use
  Company Number: 2011-00987

PATIENT
  Age: 71 Year
  Sex: Male

DRUGS (7)
  1. ALLOPURINOL [Concomitant]
  2. SIMVASTATIN [Suspect]
     Indication: HYPERCHOLESTEROLAEMIA
     Dosage: 40 MG (40 MG,),ORAL
     Route: 048
     Dates: start: 20090730, end: 20110801
  3. ATENOLOL [Concomitant]
  4. LEUPRORELIN ACETATE (PROSTAP)(UNKNOWN) [Concomitant]
  5. ASPIRIN [Concomitant]
  6. CYPROTERONE ACETATE (CYPROTERONE)(UNKNOWN) [Suspect]
     Indication: PROSTATE CANCER
     Dosage: 300 MG (100 MG,3 IN 1 D),ORAL
     Route: 048
     Dates: start: 20110628, end: 20110801
  7. BENDROFLUMETHIAZIDE (BENDROFLUAZIDE)(UNKNOWN) [Concomitant]

REACTIONS (8)
  - RHABDOMYOLYSIS [None]
  - PROSTATE CANCER [None]
  - DRUG INTERACTION [None]
  - MOBILITY DECREASED [None]
  - PARAESTHESIA [None]
  - DYSPNOEA [None]
  - FATIGUE [None]
  - MUSCULAR WEAKNESS [None]
